FAERS Safety Report 8957012 (Version 1)
Quarter: 2012Q4

REPORT INFORMATION
  Report Type: Report from Study
  Country: DE (occurrence: DE)
  Receive Date: 20121210
  Receipt Date: 20121210
  Transmission Date: 20130627
  Serious: Yes (Death, Hospitalization)
  Sender: FDA-Public Use
  Company Number: DE-BAXTER-2012BAX025910

PATIENT
  Age: 74 Year
  Sex: Female

DRUGS (21)
  1. ENDOXAN 1G [Suspect]
     Indication: DRUG USE FOR UNKNOWN INDICATION
     Route: 042
     Dates: start: 20080717, end: 20081010
  2. ENDOXAN 1G [Suspect]
     Route: 042
     Dates: start: 20080926
  3. RITUXIMAB [Suspect]
     Indication: DRUG USE FOR UNKNOWN INDICATION
     Route: 042
     Dates: start: 20080717, end: 20081010
  4. RITUXIMAB [Suspect]
     Route: 042
     Dates: start: 20080926
  5. DOXORUBICIN [Suspect]
     Indication: DRUG USE FOR UNKNOWN INDICATION
     Route: 042
     Dates: start: 20080717, end: 20081010
  6. DOXORUBICIN [Suspect]
     Route: 042
     Dates: start: 20080926
  7. PREDNISONE [Suspect]
     Indication: DRUG USE FOR UNKNOWN INDICATION
     Route: 048
     Dates: start: 20080717, end: 20081010
  8. PREDNISONE [Suspect]
     Route: 048
     Dates: start: 20080930
  9. VINCRISTINE [Suspect]
     Indication: DRUG USE FOR UNKNOWN INDICATION
     Route: 042
     Dates: start: 20080717, end: 20081010
  10. VINCRISTINE [Suspect]
     Route: 042
     Dates: start: 20080926
  11. LEVOTHYROXINE SODIUM [Concomitant]
  12. LEVOTHYROXINE SODIUM [Concomitant]
  13. FUROSEMIDE [Concomitant]
  14. FUROSEMIDE [Concomitant]
  15. MCP [Concomitant]
  16. MCP [Concomitant]
  17. MCP [Concomitant]
  18. FILGRASTIM [Concomitant]
     Route: 059
     Dates: start: 20081002
  19. BISOPROLOL [Concomitant]
  20. OMEPRAZOLE [Concomitant]
  21. HYDROCHLOROTHIAZIDE [Concomitant]
     Indication: DRUG USE FOR UNKNOWN INDICATION

REACTIONS (2)
  - Febrile neutropenia [Not Recovered/Not Resolved]
  - Death [Fatal]
